FAERS Safety Report 7443493-8 (Version None)
Quarter: 2011Q2

REPORT INFORMATION
  Report Type: 
  Country: None (occurrence: None)
  Receive Date: 20110428
  Receipt Date: 20110427
  Transmission Date: 20111010
  Serious: Yes (Hospitalization)
  Sender: FDA-Public Use
  Company Number: US-BRISTOL-MYERS SQUIBB COMPANY-15587470

PATIENT
  Age: 74 Year
  Sex: Male

DRUGS (4)
  1. ASPIRIN [Concomitant]
  2. IPILIMUMAB [Suspect]
     Indication: MALIGNANT MELANOMA
     Route: 042
     Dates: start: 20110118
  3. DILTIAZEM HCL [Concomitant]
  4. ALLOPURINOL [Concomitant]

REACTIONS (1)
  - HAEMATOCHEZIA [None]
